FAERS Safety Report 9254308 (Version 1)
Quarter: 2013Q1

REPORT INFORMATION
  Report Type: Spontaneous
  Country: US (occurrence: None)
  Receive Date: 20121211
  Receipt Date: 20121211
  Transmission Date: 20140127
  Serious: Yes (Hospitalization, Other)
  Sender: FDA-Public Use
  Company Number: 1209USA003460

PATIENT
  Age: 56 Year
  Sex: Male

DRUGS (19)
  1. ISENTRESS [Suspect]
     Dosage: ORAL
     Route: 048
  2. LYRICA [Suspect]
     Dosage: ORAL
     Route: 048
  3. VANCOMYCIN (VANCOMYCIN) [Suspect]
     Dosage: UNK, INTRAVENOUS
     Route: 042
  4. TRUVADA [Suspect]
     Dosage: DURATION 17 DAYS?ORAL
     Route: 048
  5. CLAFORAN [Suspect]
     Dosage: UNK, ORAL
     Route: 048
  6. INEXIUM [Suspect]
     Dosage: ORAL?DURATION 11 DAYS
     Route: 048
  7. ISOPTIN [Suspect]
     Dosage: ORAL
     Route: 048
  8. TERCIAN [Suspect]
     Dosage: ORAL
     Route: 048
  9. ZYPREXA (OLANZAPINE) [Suspect]
     Dosage: ORAL
     Route: 048
  10. RIVOTRIL (CLONAZEPAM) [Suspect]
     Dosage: ORAL
     Route: 048
  11. NICOPATCH [Suspect]
     Dosage: 21 MG, QD, TRANSDERMAL
     Route: 023
  12. MAG 2 [Suspect]
     Dosage: ORAL
     Route: 048
  13. IMOVANE (ZOPICLONE) [Suspect]
     Dosage: ORAL
  14. SERETIDE (FLUTICASONE PROPIONATE, SALMETEROL XINAFOATE) [Suspect]
     Dosage: RESPIRATORY
     Route: 055
  15. DOLIPRANE [Suspect]
     Dosage: ORAL
     Route: 048
  16. THIAMINE [Suspect]
     Dosage: ORAL
     Route: 048
  17. PYRIDOXINE [Suspect]
     Dosage: ORAL
     Route: 048
  18. FLAGYL [Suspect]
     Dosage: UNK, ORAL
     Route: 048
  19. LEDERFOLINE [Suspect]
     Dosage: ORAL
     Route: 048

REACTIONS (1)
  - Thrombocytopenia [None]
